FAERS Safety Report 6625730-2 (Version None)
Quarter: 2010Q1

REPORT INFORMATION
  Report Type: 
  Country: None (occurrence: None)
  Receive Date: 20100310
  Receipt Date: 20100225
  Transmission Date: 20100710
  Serious: Yes (Other)
  Sender: FDA-Public Use
  Company Number: FR-JNJFOC-20100302233

PATIENT
  Age: 49 Year
  Sex: Female

DRUGS (1)
  1. IXPRIM [Suspect]
     Indication: ARTHRALGIA
     Route: 048
     Dates: start: 20100217, end: 20100218

REACTIONS (5)
  - HYPERHIDROSIS [None]
  - LOSS OF CONSCIOUSNESS [None]
  - NAUSEA [None]
  - SOMNOLENCE [None]
  - VERTIGO [None]
